FAERS Safety Report 7976528-4 (Version None)
Quarter: 2011Q4

REPORT INFORMATION
  Report Type: 
  Country: None (occurrence: None)
  Receive Date: 20111213
  Receipt Date: 20111025
  Transmission Date: 20120403
  Serious: No
  Sender: FDA-Public Use
  Company Number: US-AMGEN-USASP2011055284

PATIENT
  Age: 44 Year
  Sex: Female
  Weight: 108 kg

DRUGS (4)
  1. ENBREL [Suspect]
     Indication: PSORIASIS
  2. SYNTHROID [Concomitant]
     Dosage: 100 MUG, QD
  3. ENBREL [Suspect]
     Indication: PSORIATIC ARTHROPATHY
     Dosage: 50 MG, 2 TIMES/WK
     Dates: start: 20110901
  4. DOVONEX [Concomitant]
     Dosage: UNK UNK, QD

REACTIONS (5)
  - INJECTION SITE RASH [None]
  - INJECTION SITE PRURITUS [None]
  - INJECTION SITE SWELLING [None]
  - INJECTION SITE INDURATION [None]
  - INJECTION SITE ERYTHEMA [None]
